FAERS Safety Report 11201802 (Version 1)
Quarter: 2015Q2

REPORT INFORMATION
  Report Type: Spontaneous
  Country: US (occurrence: None)
  Receive Date: 20150618
  Receipt Date: 20150618
  Transmission Date: 20150821
  Serious: No
  Sender: FDA-Public Use
  Company Number: None

PATIENT
  Age: 67 Year
  Sex: Female

DRUGS (1)
  1. HUMIRA [Suspect]
     Active Substance: ADALIMUMAB
     Indication: CROHN^S DISEASE
     Dosage: 40MG, Q2W, SQ
     Route: 058
     Dates: start: 20130219

REACTIONS (2)
  - Myalgia [None]
  - Bone pain [None]

NARRATIVE: CASE EVENT DATE: 20141217
